FAERS Safety Report 19825314 (Version 1)
Quarter: 2021Q3

REPORT INFORMATION
  Report Type: Report from Study
  Country: None (occurrence: BR)
  Receive Date: 20210914
  Receipt Date: 20210914
  Transmission Date: 20211014
  Serious: Yes (Disabling, Other)
  Sender: FDA-Public Use
  Company Number: BR-ABBVIE-21K-020-4076019-00

PATIENT
  Age: 55 Year
  Sex: Female

DRUGS (3)
  1. ANASTROZOLE. [Concomitant]
     Active Substance: ANASTROZOLE
     Indication: BREAST CANCER
     Dosage: UNSPECIFIC DOSE
  2. RINVOQ [Suspect]
     Active Substance: UPADACITINIB
     Indication: RHEUMATOID ARTHRITIS
     Route: 048
     Dates: start: 20210727, end: 2021
  3. LOSARTAN. [Concomitant]
     Active Substance: LOSARTAN
     Indication: HYPERTENSION
     Dosage: UNSPECIFIC DOSE

REACTIONS (5)
  - Dizziness [Unknown]
  - Bedridden [Unknown]
  - Pelvic fracture [Not Recovered/Not Resolved]
  - Accident [Unknown]
  - Fractured coccyx [Not Recovered/Not Resolved]

NARRATIVE: CASE EVENT DATE: 2021
